FAERS Safety Report 13143480 (Version 2)
Quarter: 2017Q1

REPORT INFORMATION
  Report Type: Spontaneous
  Country: IN (occurrence: IN)
  Receive Date: 20170124
  Receipt Date: 20170327
  Transmission Date: 20170428
  Serious: Yes (Life-Threatening, Hospitalization)
  Sender: FDA-Public Use
  Company Number: IN-ABBVIE-17P-078-1847603-00

PATIENT
  Age: 25 Year
  Sex: Male

DRUGS (7)
  1. VALPROATE SODIUM. [Interacting]
     Active Substance: VALPROATE SODIUM
     Route: 048
  2. CHLORPROMAZINE. [Interacting]
     Active Substance: CHLORPROMAZINE
     Indication: BIPOLAR DISORDER
     Route: 065
  3. ATROPINE. [Concomitant]
     Active Substance: ATROPINE
     Indication: PRODUCT USED FOR UNKNOWN INDICATION
  4. LORAZEPAM. [Concomitant]
     Active Substance: LORAZEPAM
     Indication: PRODUCT USED FOR UNKNOWN INDICATION
  5. SUCCINYLCHOLINE CHLORIDE. [Concomitant]
     Active Substance: SUCCINYLCHOLINE CHLORIDE
     Indication: PRODUCT USED FOR UNKNOWN INDICATION
  6. VALPROATE SODIUM. [Suspect]
     Active Substance: VALPROATE SODIUM
     Indication: BIPOLAR DISORDER
     Route: 048
  7. THIOPENTONE [Concomitant]
     Active Substance: THIOPENTAL SODIUM
     Indication: PRODUCT USED FOR UNKNOWN INDICATION

REACTIONS (8)
  - Incontinence [Unknown]
  - Muscle rigidity [Unknown]
  - Drug interaction [Unknown]
  - Blood pressure fluctuation [Unknown]
  - Neuroleptic malignant syndrome [Unknown]
  - Dysphagia [Unknown]
  - Pyrexia [Unknown]
  - Hyperhidrosis [Unknown]
